FAERS Safety Report 17006908 (Version 1)
Quarter: 2019Q4

REPORT INFORMATION
  Report Type: Spontaneous
  Country: US (occurrence: US)
  Receive Date: 20191107
  Receipt Date: 20191107
  Transmission Date: 20200122
  Serious: Yes (Other)
  Sender: FDA-Public Use
  Company Number: US-BIOGEN-2019BI00803966

PATIENT

DRUGS (2)
  1. TECFIDERA [Suspect]
     Active Substance: DIMETHYL FUMARATE
     Indication: RELAPSING-REMITTING MULTIPLE SCLEROSIS
     Route: 065
  2. TYSABRI [Suspect]
     Active Substance: NATALIZUMAB
     Indication: RELAPSING-REMITTING MULTIPLE SCLEROSIS
     Route: 065

REACTIONS (7)
  - Rectal haemorrhage [Unknown]
  - Lymphocyte count increased [Unknown]
  - Secondary progressive multiple sclerosis [Unknown]
  - Guillain-Barre syndrome [Unknown]
  - Hemiparesis [Unknown]
  - Impaired gastric emptying [Unknown]
  - Joint contracture [Unknown]
